FAERS Safety Report 5912118-2 (Version None)
Quarter: 2008Q4

REPORT INFORMATION
  Report Type: 
  Country: None (occurrence: None)
  Receive Date: 20081008
  Receipt Date: 20080929
  Transmission Date: 20090506
  Serious: Yes (Other)
  Sender: FDA-Public Use
  Company Number: US-ROCHE-584976

PATIENT
  Age: 39 Year
  Sex: Female

DRUGS (1)
  1. BONIVA [Suspect]
     Indication: DRUG USE FOR UNKNOWN INDICATION
     Route: 048
     Dates: start: 20050901

REACTIONS (5)
  - ARTHRALGIA [None]
  - BONE PAIN [None]
  - HYSTERECTOMY [None]
  - MUSCULAR WEAKNESS [None]
  - MYALGIA [None]
